FAERS Safety Report 15555700 (Version 1)
Quarter: 2018Q4

REPORT INFORMATION
  Report Type: Spontaneous
  Country: US (occurrence: US)
  Receive Date: 20181026
  Receipt Date: 20181026
  Transmission Date: 20190205
  Serious: No
  Sender: FDA-Public Use
  Company Number: US-JNJFOC-20181001142

PATIENT
  Sex: Female

DRUGS (2)
  1. MENS ROGAINE EXTRA STRENGTH [Suspect]
     Active Substance: MINOXIDIL
     Route: 061
  2. MENS ROGAINE EXTRA STRENGTH [Suspect]
     Active Substance: MINOXIDIL
     Indication: ANDROGENETIC ALOPECIA
     Dosage: A LITTLE MORE THAN RECOMMENDED (A LITTLE MORE THAN A CAPFUL DAILY
     Route: 061
     Dates: start: 20180925

REACTIONS (3)
  - Overdose [Unknown]
  - Product use issue [Unknown]
  - Off label use [Unknown]
